FAERS Safety Report 9741543 (Version 1)
Quarter: 2013Q4

REPORT INFORMATION
  Report Type: Spontaneous
  Country: KR (occurrence: KR)
  Receive Date: 20131210
  Receipt Date: 20131210
  Transmission Date: 20140711
  Serious: Yes (Other)
  Sender: FDA-Public Use
  Company Number: KR-009507513-1312KOR002855

PATIENT
  Sex: Female

DRUGS (1)
  1. IMPLANON [Suspect]
     Route: 059

REACTIONS (2)
  - Surgery [Unknown]
  - Breast cancer stage II [Unknown]
